FAERS Safety Report 18478675 (Version 1)
Quarter: 2020Q4

REPORT INFORMATION
  Report Type: Spontaneous
  Country: DE (occurrence: DE)
  Receive Date: 20201109
  Receipt Date: 20201109
  Transmission Date: 20210114
  Serious: Yes (Other)
  Sender: FDA-Public Use
  Company Number: DE-TEVA-2020-DE-1845473

PATIENT
  Age: 53 Year
  Sex: Female
  Weight: 51 kg

DRUGS (4)
  1. PREDNISOLON [Concomitant]
     Active Substance: PREDNISOLONE
     Indication: OPTIC ISCHAEMIC NEUROPATHY
     Dosage: STARTING ACCORDING TO THE PLAN, 100 MG IN 20 MG STEPS FOR 2 DAYS EACH
     Route: 048
     Dates: start: 20201006, end: 20201015
  2. PANTOPRAZOL [Concomitant]
     Active Substance: PANTOPRAZOLE SODIUM
     Dosage: 1 DOSAGE FORMS DAILY; 1-0-0
     Route: 048
     Dates: start: 20201006, end: 20201015
  3. TRENTAL [Suspect]
     Active Substance: PENTOXIFYLLINE
     Indication: OPTIC ISCHAEMIC NEUROPATHY
     Dosage: 1200 MILLIGRAM DAILY; 1-1-1
     Route: 048
     Dates: start: 20201006, end: 20201010
  4. ATORVASTATIN 20 MG [Suspect]
     Active Substance: ATORVASTATIN
     Indication: OPTIC ISCHAEMIC NEUROPATHY
     Dosage: 20MG
     Route: 048
     Dates: start: 20201006, end: 20201010

REACTIONS (12)
  - Headache [Recovering/Resolving]
  - Sense of oppression [Recovering/Resolving]
  - Nausea [Recovering/Resolving]
  - Flushing [Recovering/Resolving]
  - Feeling hot [Recovering/Resolving]
  - Anxiety [Recovering/Resolving]
  - Dysgeusia [Recovering/Resolving]
  - Angina pectoris [Recovering/Resolving]
  - Insomnia [Recovering/Resolving]
  - Chest pain [Recovering/Resolving]
  - Restlessness [Recovering/Resolving]
  - Back pain [Recovering/Resolving]

NARRATIVE: CASE EVENT DATE: 20201008
